FAERS Safety Report 9931669 (Version 1)
Quarter: 2014Q1

REPORT INFORMATION
  Report Type: Spontaneous
  Country: US (occurrence: None)
  Receive Date: 20140224
  Receipt Date: 20140224
  Transmission Date: 20141002
  Serious: No
  Sender: FDA-Public Use
  Company Number: NL01PV14.35264

PATIENT
  Age: 39 Year
  Sex: Female

DRUGS (5)
  1. UNKNOWN (ZOLPIDEM) TABLET [Suspect]
     Dosage: UNK, ORAL
     Route: 048
  2. TIZANIDINE (TIZANIDINE) [Suspect]
     Dosage: UNK, ORAL
  3. CLONAZEPAM (CLONAZEPAM) (CLONAZEPAM) [Suspect]
     Dosage: UNK, ORAL
     Route: 048
  4. METHOCARBAMOL [Suspect]
     Dosage: UNK, ORAL
     Route: 048
  5. CITALOPRAM (CITALOPRAM) [Suspect]
     Dosage: UNK, ORAL
     Route: 048

REACTIONS (4)
  - Completed suicide [None]
  - Respiratory arrest [None]
  - Cardiac arrest [None]
  - Exposure via ingestion [None]
